FAERS Safety Report 18154635 (Version 3)
Quarter: 2020Q4

REPORT INFORMATION
  Report Type: Spontaneous
  Country: JP (occurrence: JP)
  Receive Date: 20200817
  Receipt Date: 20201001
  Transmission Date: 20210113
  Serious: Yes (Other)
  Sender: FDA-Public Use
  Company Number: JP-ROCHE-2659951

PATIENT
  Age: 78 Year
  Sex: Male

DRUGS (5)
  1. BEOVU [Suspect]
     Active Substance: BROLUCIZUMAB-DBLL
     Indication: AGE-RELATED MACULAR DEGENERATION
     Dosage: FORM STRENGTH: 120MG/ML
     Route: 031
     Dates: start: 20200527, end: 20200527
  2. LUCENTIS [Suspect]
     Active Substance: RANIBIZUMAB
     Indication: AGE-RELATED MACULAR DEGENERATION
     Route: 031
     Dates: start: 20191127
  3. BEOVU [Suspect]
     Active Substance: BROLUCIZUMAB-DBLL
     Indication: RETINAL EXUDATES
     Route: 031
  4. EYLEA [Suspect]
     Active Substance: AFLIBERCEPT
     Indication: AGE-RELATED MACULAR DEGENERATION
     Dosage: UNK, LEFT EYE, 22ND INJECTION
     Route: 031
     Dates: start: 20200415
  5. LUCENTIS [Suspect]
     Active Substance: RANIBIZUMAB
     Route: 031
     Dates: start: 20200108, end: 20200108

REACTIONS (3)
  - Anterior chamber inflammation [Recovering/Resolving]
  - Keratic precipitates [Recovered/Resolved]
  - Iritis [Recovering/Resolving]

NARRATIVE: CASE EVENT DATE: 20200624
